FAERS Safety Report 4712692-8 (Version None)
Quarter: 2005Q3

REPORT INFORMATION
  Report Type: 
  Country: None (occurrence: None)
  Receive Date: 20050701
  Receipt Date: 20040510
  Transmission Date: 20060218
  Serious: Yes (Other)
  Sender: FDA-Public Use
  Company Number: 2004015130

PATIENT
  Age: 10 Year
  Sex: Male
  Weight: 36.2878 kg

DRUGS (4)
  1. ZOLOFT [Suspect]
     Indication: DEPRESSION
     Dosage: 50 MG (25 MG, 2 IN 1 D), ORAL
     Route: 048
  2. ZOLOFT [Suspect]
     Indication: OBSESSIVE-COMPULSIVE DISORDER
     Dosage: 50 MG (25 MG, 2 IN 1 D), ORAL
     Route: 048
  3. VALPROATE SODIUM [Suspect]
     Indication: CONVULSION
     Dosage: ORAL
     Route: 048
  4. CLONAZEPAM [Concomitant]

REACTIONS (4)
  - ADVERSE EVENT [None]
  - CONVULSION [None]
  - EPISTAXIS [None]
  - HEADACHE [None]
